FAERS Safety Report 9358546 (Version 1)
Quarter: 2013Q2

REPORT INFORMATION
  Report Type: Spontaneous
  Country: US (occurrence: US)
  Receive Date: 20130620
  Receipt Date: 20130620
  Transmission Date: 20140414
  Serious: No
  Sender: FDA-Public Use
  Company Number: US-VERTEX PHARMACEUTICALS INC-2013-007243

PATIENT
  Age: 55 Year
  Sex: Male
  Weight: 114 kg

DRUGS (4)
  1. INCIVEK [Suspect]
     Indication: HEPATITIS C
     Dosage: 750 MG, TID
     Route: 048
     Dates: start: 20130503
  2. COPEGUS [Suspect]
     Indication: HEPATITIS C
     Dosage: 3 PILLS IN AM, 2 PILLS IN PM
     Route: 048
     Dates: start: 20130503
  3. PEGASYS [Suspect]
     Indication: HEPATITIS C
     Dosage: 180 ?G, QW
     Route: 058
     Dates: start: 20130503
  4. ALLERGY MEDICATION [Concomitant]
     Indication: SEASONAL ALLERGY

REACTIONS (2)
  - Diarrhoea [Not Recovered/Not Resolved]
  - Decreased appetite [Not Recovered/Not Resolved]
